FAERS Safety Report 13686703 (Version 4)
Quarter: 2017Q4

REPORT INFORMATION
  Report Type: Report from Study
  Country: SG (occurrence: SG)
  Receive Date: 20170623
  Receipt Date: 20171002
  Transmission Date: 20180320
  Serious: Yes (Hospitalization)
  Sender: FDA-Public Use
  Company Number: SG-B.I. PHARMACEUTICALS,INC./RIDGEFIELD-2017-BI-033919

PATIENT
  Age: 59 Year
  Sex: Male
  Weight: 62 kg

DRUGS (2)
  1. PROCODIN [Concomitant]
     Indication: DRUG THERAPY
     Dosage: PROMETHAZINE 3.6MG/5ML, CODEINE 9MG/5ML
     Route: 048
     Dates: start: 20161001, end: 20161031
  2. GILOTRIF [Suspect]
     Active Substance: AFATINIB
     Indication: NON-SMALL CELL LUNG CANCER
     Route: 048
     Dates: start: 20161001, end: 20170508

REACTIONS (4)
  - Rash maculo-papular [Not Recovered/Not Resolved]
  - Abscess [Recovered/Resolved]
  - Paronychia [Not Recovered/Not Resolved]
  - Rash maculo-papular [Recovered/Resolved]

NARRATIVE: CASE EVENT DATE: 20161025
